FAERS Safety Report 7333429-2 (Version None)
Quarter: 2011Q1

REPORT INFORMATION
  Report Type: 
  Country: None (occurrence: None)
  Receive Date: 20110304
  Receipt Date: 20110221
  Transmission Date: 20110831
  Serious: Yes (Other)
  Sender: FDA-Public Use
  Company Number: PHHY2011US14421

PATIENT
  Sex: Female

DRUGS (2)
  1. ZITHROMAX [Concomitant]
  2. FEMARA [Suspect]
     Indication: BREAST NEOPLASM
     Dosage: 2.5 MG, QD
     Route: 048
     Dates: start: 20100301

REACTIONS (2)
  - VIRAL INFECTION [None]
  - RESPIRATORY DISORDER [None]
